FAERS Safety Report 8612710-0 (Version None)
Quarter: 2012Q3

REPORT INFORMATION
  Report Type: 
  Country: None (occurrence: None)
  Receive Date: 20120822
  Receipt Date: 20110818
  Transmission Date: 20120928
  Serious: No
  Sender: FDA-Public Use
  Company Number: US-ASTRAZENECA-2011SE49631

PATIENT
  Age: 47 Year
  Sex: Male

DRUGS (3)
  1. TRAZODONE HCL [Interacting]
     Route: 065
  2. SYMBICORT [Suspect]
     Route: 055
  3. PREDNISONE TAB [Interacting]
     Route: 065

REACTIONS (4)
  - HYPERSENSITIVITY [None]
  - URTICARIA [None]
  - RASH [None]
  - DRUG INTERACTION [None]
